FAERS Safety Report 8091944-0 (Version None)
Quarter: 2012Q1

REPORT INFORMATION
  Report Type: 
  Country: None (occurrence: None)
  Receive Date: 20120131
  Receipt Date: 20120120
  Transmission Date: 20120608
  Serious: No
  Sender: FDA-Public Use
  Company Number: US-B.I. PHARMACEUTICALS,INC./RIDGEFIELD-2012-BP-01238BP

PATIENT
  Sex: Male

DRUGS (16)
  1. AMLODIPINE [Concomitant]
     Indication: HYPERTENSION
  2. PRADAXA [Suspect]
     Indication: ATRIAL FIBRILLATION
     Dosage: 300 MG
     Route: 048
     Dates: start: 20111124
  3. ALLOPURINOL [Concomitant]
     Indication: GOUT
  4. METFORMIN HCL [Concomitant]
     Indication: TYPE 2 DIABETES MELLITUS
  5. ASPIRIN [Concomitant]
  6. VIT B [Concomitant]
  7. WARFARIN SODIUM [Concomitant]
     Indication: ATRIAL FIBRILLATION
     Dosage: 5 MG
     Route: 048
     Dates: start: 20120118
  8. METOLAZONE [Concomitant]
     Indication: DIURETIC THERAPY
  9. VALSARTAN [Concomitant]
  10. COLCHICINE [Concomitant]
     Indication: GOUT
  11. SPIRONOLACTONE [Concomitant]
     Indication: OEDEMA
  12. PRAVASTATIN [Concomitant]
     Indication: BLOOD CHOLESTEROL INCREASED
  13. NIACIN [Concomitant]
  14. METOPROLOL TARTRATE [Concomitant]
     Indication: HYPERTENSION
  15. POTASSIUM [Concomitant]
  16. VITAMIN D [Concomitant]

REACTIONS (8)
  - FLATULENCE [None]
  - ARTHRALGIA [None]
  - RASH MACULAR [None]
  - DIARRHOEA [None]
  - FEELING HOT [None]
  - ERYTHEMA [None]
  - PRURITUS GENERALISED [None]
  - FLUSHING [None]
